FAERS Safety Report 10157059 (Version 1)
Quarter: 2014Q2

REPORT INFORMATION
  Report Type: Spontaneous
  Country: US (occurrence: None)
  Receive Date: 20140506
  Receipt Date: 20140506
  Transmission Date: 20141212
  Serious: No
  Sender: FDA-Public Use
  Company Number: None

PATIENT
  Age: 12 Year
  Sex: Male
  Weight: 93.4 kg

DRUGS (5)
  1. GENERIC DEPAKOTE [Suspect]
     Indication: AFFECTIVE DISORDER
     Route: 048
     Dates: start: 201402
  2. FOCALIN XR [Concomitant]
  3. CELEXA [Concomitant]
  4. WELLBUTRIN XL [Concomitant]
  5. CLONIDINE [Concomitant]

REACTIONS (2)
  - Drug effect decreased [None]
  - Product substitution issue [None]
